FAERS Safety Report 5257950-6 (Version None)
Quarter: 2007Q1

REPORT INFORMATION
  Report Type: 
  Country: None (occurrence: None)
  Receive Date: 20070307
  Receipt Date: 20061107
  Transmission Date: 20070707
  Serious: No
  Sender: FDA-Public Use
  Company Number: US-GLAXOSMITHKLINE-A0626581A

PATIENT
  Age: 79 Year
  Sex: Male

DRUGS (5)
  1. REQUIP [Suspect]
     Indication: RESTLESS LEGS SYNDROME
     Dosage: 1.5MG PER DAY
     Route: 048
     Dates: start: 20061103, end: 20061105
  2. HYDROCHLOROTHIAZIDE [Concomitant]
  3. NEXIUM [Concomitant]
  4. POTASSIUM CHLORIDE [Concomitant]
  5. AMBIEN [Concomitant]

REACTIONS (5)
  - DRUG INEFFECTIVE [None]
  - DYSURIA [None]
  - INSOMNIA [None]
  - PAIN IN EXTREMITY [None]
  - PRESCRIBED OVERDOSE [None]
